FAERS Safety Report 5220724-6 (Version None)
Quarter: 2007Q1

REPORT INFORMATION
  Report Type: 
  Country: None (occurrence: None)
  Receive Date: 20070126
  Receipt Date: 20070118
  Transmission Date: 20070707
  Serious: Yes (Hospitalization)
  Sender: FDA-Public Use
  Company Number: 2007UW01483

PATIENT
  Age: 66 Year
  Sex: Female
  Weight: 70.9 kg

DRUGS (2)
  1. PRILOSEC OTC [Suspect]
     Indication: GASTROOESOPHAGEAL REFLUX DISEASE
     Route: 048
     Dates: start: 20040101, end: 20061001
  2. MULTIPLE UNSPECIFIED MEDICATIONS [Concomitant]

REACTIONS (1)
  - OESOPHAGEAL ULCER [None]
